FAERS Safety Report 7673084-5 (Version None)
Quarter: 2011Q3

REPORT INFORMATION
  Report Type: 
  Country: None (occurrence: None)
  Receive Date: 20110810
  Receipt Date: 20110803
  Transmission Date: 20111222
  Serious: Yes (Hospitalization)
  Sender: FDA-Public Use
  Company Number: US-BIOGENIDEC-2011BI017907

PATIENT
  Age: 32 Year
  Sex: Female

DRUGS (1)
  1. TYSABRI [Suspect]
     Indication: MULTIPLE SCLEROSIS
     Route: 042
     Dates: start: 20090319

REACTIONS (6)
  - INCISION SITE INFECTION [None]
  - BREAST DISCOMFORT [None]
  - ANAEMIA [None]
  - MULTIPLE SCLEROSIS RELAPSE [None]
  - GASTRIC DISORDER [None]
  - SUTURE RUPTURE [None]
